FAERS Safety Report 9507731 (Version 2)
Quarter: 2013Q3

REPORT INFORMATION
  Report Type: Spontaneous
  Country: ZA (occurrence: ZA)
  Receive Date: 20130909
  Receipt Date: 20130916
  Transmission Date: 20140515
  Serious: Yes (Hospitalization)
  Sender: FDA-Public Use
  Company Number: ZA-NOVOPROD-386674

PATIENT
  Sex: Female
  Weight: 3.97 kg

DRUGS (7)
  1. NOVORAPID FLEXPEN [Suspect]
     Indication: TYPE 2 DIABETES MELLITUS
     Dosage: 20 IU, QD (6U MORNING, 6U LUNCH AND 8 UNITS AT NIGHT )
     Route: 064
     Dates: start: 20130808
  2. NOVORAPID FLEXPEN [Suspect]
     Indication: TYPE 2 DIABETES MELLITUS
     Dosage: 20 IU, QD (6U MORNING, 6U LUNCH AND 8 UNITS AT NIGHT )
     Route: 064
     Dates: start: 20130808
  3. NOVORAPID FLEXPEN [Suspect]
     Dosage: 26 IU, QD (8IU MORNING, 8 UNITS LUNCH AND 10IU AT NIGHT )
     Route: 064
  4. NOVORAPID FLEXPEN [Suspect]
     Dosage: 26 IU, QD (8IU MORNING, 8 UNITS LUNCH AND 10IU AT NIGHT )
     Route: 064
  5. NOVORAPID FLEXPEN [Suspect]
     Dosage: 4 UNITS (IF SUGAR LEVEL IS 7 TO 11MMOL/L AND IF BELOW DOES NOT TAKE ANYTHING)
     Route: 064
  6. NOVORAPID FLEXPEN [Suspect]
     Dosage: 4 UNITS (IF SUGAR LEVEL IS 7 TO 11MMOL/L AND IF BELOW DOES NOT TAKE ANYTHING)
     Route: 064
  7. GLUCOPHAGE [Concomitant]
     Dosage: UNK
     Route: 064

REACTIONS (3)
  - Pyloric sphincter insufficiency [Unknown]
  - Malnutrition [Unknown]
  - Foetal exposure during pregnancy [Unknown]
